FAERS Safety Report 11095559 (Version 8)
Quarter: 2015Q4

REPORT INFORMATION
  Report Type: Report from Study
  Country: CA (occurrence: CA)
  Receive Date: 20150506
  Receipt Date: 20151231
  Transmission Date: 20160304
  Serious: Yes (Other)
  Sender: FDA-Public Use
  Company Number: PHHY2015CA020312

PATIENT
  Age: 42 Year
  Sex: Female

DRUGS (11)
  1. SANDOSTATIN LAR DEPOT [Suspect]
     Active Substance: OCTREOTIDE ACETATE
     Indication: ACROMEGALY
     Dosage: 10 MG, EVERY 4 TO 6 WEEKS
     Route: 030
     Dates: start: 20141203
  2. SANDOSTATIN LAR DEPOT [Suspect]
     Active Substance: OCTREOTIDE ACETATE
     Dosage: 10 MG, EVERY 4 TO 6 WEEKS
     Route: 030
     Dates: start: 20150609
  3. SANDOSTATIN [Suspect]
     Active Substance: OCTREOTIDE ACETATE
     Dosage: UNK
     Route: 058
     Dates: start: 20140904, end: 20140904
  4. SANDOSTATIN LAR DEPOT [Suspect]
     Active Substance: OCTREOTIDE ACETATE
     Dosage: 10 MG, EVERY 4 TO 6 WEEKS
     Route: 030
  5. SANDOSTATIN LAR DEPOT [Suspect]
     Active Substance: OCTREOTIDE ACETATE
     Dosage: 10 MG, EVERY 3 WEEKS
     Route: 030
     Dates: start: 20141203
  6. SANDOSTATIN [Suspect]
     Active Substance: OCTREOTIDE ACETATE
     Indication: ACROMEGALY
     Dosage: TEST DOSE
     Route: 058
     Dates: start: 20140227
  7. BUTRANS [Concomitant]
     Active Substance: BUPRENORPHINE
     Indication: PRODUCT USED FOR UNKNOWN INDICATION
     Route: 065
  8. SANDOSTATIN [Suspect]
     Active Substance: OCTREOTIDE ACETATE
     Dosage: (HIGH DOSE)
     Route: 058
     Dates: start: 20141103
  9. SANDOSTATIN LAR DEPOT [Suspect]
     Active Substance: OCTREOTIDE ACETATE
     Dosage: 20 MG
     Route: 030
     Dates: start: 20150513
  10. SANDOSTATIN LAR DEPOT [Suspect]
     Active Substance: OCTREOTIDE ACETATE
     Dosage: 10 MG, EVERY 21 DAYS
     Route: 030
  11. PERCOCET [Concomitant]
     Active Substance: ACETAMINOPHEN\OXYCODONE HYDROCHLORIDE
     Indication: PRODUCT USED FOR UNKNOWN INDICATION
     Route: 065

REACTIONS (17)
  - Arnold-Chiari malformation [Unknown]
  - Feeling hot [Unknown]
  - Vision blurred [Unknown]
  - Nausea [Unknown]
  - Neck pain [Unknown]
  - Body temperature increased [Unknown]
  - Injection site rash [Unknown]
  - Constipation [Unknown]
  - Drug hypersensitivity [Unknown]
  - Blood pressure decreased [Unknown]
  - Inappropriate schedule of drug administration [Unknown]
  - Body temperature decreased [Unknown]
  - Malaise [Unknown]
  - Headache [Not Recovered/Not Resolved]
  - Therapeutic response unexpected [Unknown]
  - Paraesthesia oral [Unknown]
  - Drug intolerance [Unknown]

NARRATIVE: CASE EVENT DATE: 20140227
